FAERS Safety Report 7645163-X (Version None)
Quarter: 2011Q3

REPORT INFORMATION
  Report Type: 
  Country: None (occurrence: None)
  Receive Date: 20110725
  Receipt Date: 20110708
  Transmission Date: 20111222
  Serious: Yes (Life-Threatening, Hospitalization)
  Sender: FDA-Public Use
  Company Number: TCI2011A03588

PATIENT
  Age: 75 Year
  Sex: Male

DRUGS (15)
  1. GASPORT (FAMOTIDINE) [Concomitant]
  2. LANDEL (EFONIDIPINE HYDROCHLORIDE) [Concomitant]
  3. OLMESARTAN MEDOXOMIL [Concomitant]
  4. CALBLOCK (AZELNIDIPINE) [Concomitant]
  5. MICARDIS [Concomitant]
  6. BLOPRESS (CANDESARTAN CILEXETIL) [Concomitant]
  7. LANSOPRAZOLE [Concomitant]
  8. AMARYL [Concomitant]
  9. OMEPRAZOLE [Concomitant]
  10. RABEPRAZOLE SODIUM [Concomitant]
  11. ACTOS [Suspect]
     Indication: TYPE 2 DIABETES MELLITUS
     Dosage: 15 MG (15 MG, 1 IN 1 D), PER ORAL, 30 MG (30 MG,L IN 1 D), PER ORAL
     Route: 048
     Dates: start: 20090216, end: 20090802
  12. ACTOS [Suspect]
     Indication: TYPE 2 DIABETES MELLITUS
     Dosage: 15 MG (15 MG, 1 IN 1 D), PER ORAL, 30 MG (30 MG,L IN 1 D), PER ORAL
     Route: 048
     Dates: start: 20061205, end: 20081222
  13. ACTOS [Suspect]
     Indication: TYPE 2 DIABETES MELLITUS
     Dosage: 15 MG (15 MG, 1 IN 1 D), PER ORAL, 30 MG (30 MG,L IN 1 D), PER ORAL
     Route: 048
     Dates: start: 20061023, end: 20061204
  14. ACTOS [Suspect]
     Indication: TYPE 2 DIABETES MELLITUS
     Dosage: 15 MG (15 MG, 1 IN 1 D), PER ORAL, 30 MG (30 MG,L IN 1 D), PER ORAL
     Route: 048
     Dates: start: 20090803, end: 20110622
  15. NORVASC [Concomitant]

REACTIONS (4)
  - HAEMATURIA [None]
  - WEIGHT INCREASED [None]
  - LARGE INTESTINE CARCINOMA [None]
  - BLADDER CANCER [None]
